FAERS Safety Report 8456883-1 (Version None)
Quarter: 2012Q2

REPORT INFORMATION
  Report Type: 
  Country: None (occurrence: None)
  Receive Date: 20120621
  Receipt Date: 20120608
  Transmission Date: 20120825
  Serious: No
  Sender: FDA-Public Use
  Company Number: US-ASTRAZENECA-2012SE29429

PATIENT
  Age: 16 Year
  Sex: Male

DRUGS (2)
  1. NEXIUM [Suspect]
     Route: 048
  2. PRILOSEC [Suspect]
     Route: 048

REACTIONS (10)
  - GASTROINTESTINAL ULCER [None]
  - APHAGIA [None]
  - PANIC ATTACK [None]
  - WEIGHT DECREASED [None]
  - AUTISM [None]
  - SCOLIOSIS [None]
  - SENSORY DISTURBANCE [None]
  - SINUSITIS [None]
  - INTENTIONAL DRUG MISUSE [None]
  - DRUG INEFFECTIVE [None]
